FAERS Safety Report 23598017 (Version 4)
Quarter: 2024Q1

REPORT INFORMATION
  Report Type: Spontaneous
  Country: US (occurrence: US)
  Receive Date: 20240305
  Receipt Date: 20240328
  Transmission Date: 20240410
  Serious: No
  Sender: FDA-Public Use
  Company Number: US-DAIICHI SANKYO, INC.-DSU-2024-110034AA

PATIENT
  Sex: Female

DRUGS (2)
  1. TURALIO [Suspect]
     Active Substance: PEXIDARTINIB HYDROCHLORIDE
     Indication: Connective tissue neoplasm
     Dosage: 250 MG, BID
     Route: 048
     Dates: start: 20231223
  2. TURALIO [Suspect]
     Active Substance: PEXIDARTINIB HYDROCHLORIDE
     Indication: Soft tissue neoplasm

REACTIONS (9)
  - Depression [Recovered/Resolved]
  - Lacrimation increased [Recovered/Resolved]
  - Appetite disorder [Recovered/Resolved]
  - Weight fluctuation [Recovered/Resolved]
  - Rotator cuff syndrome [Recovered/Resolved]
  - Muscle injury [Recovered/Resolved]
  - Rotator cuff syndrome [Recovered/Resolved]
  - Therapy interrupted [Recovered/Resolved]
  - Product dose omission issue [Recovered/Resolved]
